FAERS Safety Report 9408046 (Version 2)
Quarter: 2013Q3

REPORT INFORMATION
  Report Type: Report from Study
  Country: DE (occurrence: DE)
  Receive Date: 20130718
  Receipt Date: 20130807
  Transmission Date: 20140515
  Serious: Yes (Hospitalization)
  Sender: FDA-Public Use
  Company Number: DE-BRISTOL-MYERS SQUIBB COMPANY-19102227

PATIENT
  Age: 63 Year
  Sex: Female
  Weight: 73 kg

DRUGS (3)
  1. CARBOPLATIN [Suspect]
     Indication: OVARIAN CANCER
     Dosage: 11JUN2013-24JUN-2013 (134 D)LAST DOSE PRIOR TO SAE:03JUN13,DOSE AUC 5.
     Route: 042
     Dates: start: 20130211
  2. PACLITAXEL [Suspect]
     Indication: OVARIAN CANCER
     Dosage: 11FEB2013-24JUN2013 (134D)LAST DOSE PRIOR TO SAE:03JUN13.
     Route: 042
     Dates: start: 20130211
  3. BEVACIZUMAB [Suspect]
     Indication: OVARIAN CANCER
     Dosage: 04MAR2013-24JUN2013 (113D)LAST DOSE PRIOR TO SAE:03JUN13.
     Route: 042
     Dates: start: 20130304

REACTIONS (2)
  - Device related infection [Recovered/Resolved]
  - Wound dehiscence [Recovered/Resolved]
